FAERS Safety Report 20303738 (Version 1)
Quarter: 2022Q1

REPORT INFORMATION
  Report Type: Spontaneous
  Country: US (occurrence: US)
  Receive Date: 20220106
  Receipt Date: 20220106
  Transmission Date: 20220423
  Serious: No
  Sender: FDA-Public Use
  Company Number: US-GLENMARK PHARMACEUTICALS-2021GMK068940

PATIENT

DRUGS (9)
  1. OXCARBAZEPINE [Suspect]
     Active Substance: OXCARBAZEPINE
     Indication: Bipolar disorder
     Dosage: 150 MILLIGRAM, BID (TWICE DAILY)
     Route: 048
     Dates: start: 202105
  2. OXCARBAZEPINE [Suspect]
     Active Substance: OXCARBAZEPINE
     Indication: Depression
  3. OXCARBAZEPINE [Suspect]
     Active Substance: OXCARBAZEPINE
     Indication: Bipolar disorder
     Dosage: 300 MILLIGRAM, BID (TWICE DAILY)
     Route: 048
     Dates: start: 202105
  4. OXCARBAZEPINE [Suspect]
     Active Substance: OXCARBAZEPINE
     Indication: Depression
  5. ROPINIROLE [Concomitant]
     Active Substance: ROPINIROLE
     Indication: Restless legs syndrome
     Dosage: 2 MILLIGRAM, OD
     Route: 048
     Dates: start: 2020
  6. METOPROLOL [Concomitant]
     Active Substance: METOPROLOL
     Indication: Arrhythmia
     Dosage: UNK 1/2 TABLET, BID (2 TIMES DAILY)
     Route: 048
     Dates: start: 2018
  7. MELOXICAM [Concomitant]
     Active Substance: MELOXICAM
     Indication: Osteoarthritis
     Dosage: 15 MILLIGRAM, OD
     Route: 048
     Dates: start: 2019
  8. BUSPIRONE HCL [Concomitant]
     Active Substance: BUSPIRONE HYDROCHLORIDE
     Indication: Anxiety
     Dosage: 10 MILLIGRAM, OD
     Route: 048
     Dates: start: 202002
  9. EUTHYROX [Concomitant]
     Active Substance: LEVOTHYROXINE SODIUM
     Indication: Thyroid disorder
     Dosage: 137 MICROGRAM, OD
     Route: 048

REACTIONS (6)
  - Pruritus [Unknown]
  - Limb discomfort [Unknown]
  - Drug effective for unapproved indication [Unknown]
  - Drug hypersensitivity [Unknown]
  - Rash [Unknown]
  - Swollen tongue [Unknown]
